FAERS Safety Report 19037131 (Version 2)
Quarter: 2021Q3

REPORT INFORMATION
  Report Type: Spontaneous
  Country: US (occurrence: US)
  Receive Date: 20210322
  Receipt Date: 20210927
  Transmission Date: 20211014
  Serious: Yes (Other)
  Sender: FDA-Public Use
  Company Number: US-JNJFOC-20210339114

PATIENT
  Age: 8 Decade
  Sex: Female

DRUGS (3)
  1. ELMIRON [Suspect]
     Active Substance: PENTOSAN POLYSULFATE SODIUM
     Indication: CYSTITIS INTERSTITIAL
     Dosage: 1 BEFORE EVERY MEAL
     Route: 048
     Dates: start: 2000, end: 2010
  2. VITAMIN E [Concomitant]
     Active Substance: .ALPHA.-TOCOPHEROL
     Route: 065
     Dates: start: 1980
  3. OLMESARTAN [Concomitant]
     Active Substance: OLMESARTAN
     Indication: HYPERTENSION
     Route: 065

REACTIONS (4)
  - Macular hole [Unknown]
  - Ocular hyperaemia [Unknown]
  - Dry eye [Unknown]
  - Vitreous floaters [Unknown]

NARRATIVE: CASE EVENT DATE: 2018
